FAERS Safety Report 6954039-2 (Version None)
Quarter: 2010Q3

REPORT INFORMATION
  Report Type: 
  Country: None (occurrence: None)
  Receive Date: 20100829
  Receipt Date: 20100706
  Transmission Date: 20110219
  Serious: No
  Sender: FDA-Public Use
  Company Number: US-ABBOTT-10P-163-0655373-00

PATIENT
  Sex: Female
  Weight: 66.284 kg

DRUGS (2)
  1. NIASPAN [Suspect]
     Indication: FAMILIAL RISK FACTOR
     Dosage: AT BEDTIME
     Dates: start: 20100629
  2. NIASPAN [Suspect]

REACTIONS (3)
  - COUGH [None]
  - HEADACHE [None]
  - PAIN IN EXTREMITY [None]
